FAERS Safety Report 17631882 (Version 1)
Quarter: 2020Q2

REPORT INFORMATION
  Report Type: Spontaneous
  Country: GB (occurrence: GB)
  Receive Date: 20200406
  Receipt Date: 20200406
  Transmission Date: 20200713
  Serious: Yes (Other)
  Sender: FDA-Public Use
  Company Number: GB-ASTRAZENECA-2020SE46783

PATIENT
  Age: 61 Year
  Sex: Female

DRUGS (5)
  1. VALPROIC ACID. [Suspect]
     Active Substance: VALPROIC ACID
     Route: 048
  2. CASSIA [Concomitant]
     Route: 048
  3. THIAMINE. [Concomitant]
     Active Substance: THIAMINE
     Route: 048
  4. QUETIAPINE. [Suspect]
     Active Substance: QUETIAPINE
     Route: 048
     Dates: end: 20200228
  5. DOCUSATE [Concomitant]
     Active Substance: DOCUSATE
     Route: 048

REACTIONS (3)
  - Intentional dose omission [Unknown]
  - Gait disturbance [Unknown]
  - Hyponatraemia [Recovering/Resolving]

NARRATIVE: CASE EVENT DATE: 20200228
